FAERS Safety Report 7340035-2 (Version None)
Quarter: 2011Q1

REPORT INFORMATION
  Report Type: 
  Country: None (occurrence: None)
  Receive Date: 20110309
  Receipt Date: 20110302
  Transmission Date: 20110831
  Serious: Yes (Hospitalization)
  Sender: FDA-Public Use
  Company Number: FR-ASTELLAS-2011EU000653

PATIENT
  Sex: Male
  Weight: 60 kg

DRUGS (8)
  1. PROSCAR [Concomitant]
     Indication: BENIGN PROSTATIC HYPERPLASIA
     Dosage: 1 DF, UNKNOWN/D
     Route: 048
  2. INIPOMP [Concomitant]
     Indication: DYSPEPSIA
     Dosage: 1 DF, UNKNOWN/D
     Route: 048
  3. COZAAR [Concomitant]
     Indication: HYPERTENSION
     Dosage: 1 DF, UNKNOWN/D
     Route: 048
  4. DIFFU K [Concomitant]
     Indication: HYPOKALAEMIA
     Dosage: 1 DF, UNKNOWN/D
     Route: 048
  5. VESICARE [Interacting]
     Indication: MICTURITION URGENCY
     Dosage: 1 DF, UID/QD
     Route: 048
     Dates: start: 20110107
  6. XATRAL [Concomitant]
     Indication: BENIGN PROSTATIC HYPERPLASIA
     Dosage: 1 DF, UNKNOWN/D
     Route: 048
  7. VESICARE [Suspect]
     Indication: INCONTINENCE
     Dosage: 1 DF, UID/QD
     Route: 048
     Dates: start: 20101109, end: 20101201
  8. KARDEGIC [Concomitant]
     Indication: HYPERTENSION
     Dosage: 1 DF, UNKNOWN/D
     Route: 048

REACTIONS (2)
  - DRUG INTERACTION [None]
  - PRESYNCOPE [None]
